FAERS Safety Report 6215583-9 (Version None)
Quarter: 2009Q2

REPORT INFORMATION
  Report Type: 
  Country: None (occurrence: None)
  Receive Date: 20090605
  Receipt Date: 20090601
  Transmission Date: 20091009
  Serious: Yes (Other)
  Sender: FDA-Public Use
  Company Number: AU-WYE-G02505008

PATIENT
  Sex: Male

DRUGS (3)
  1. REFACTO [Suspect]
     Indication: FACTOR VIII DEFICIENCY
     Dosage: UNKNOWN
  2. REFACTO [Suspect]
     Dosage: 2000 UNITS THREE TIMES OVER 36 HOURS
  3. REFACTO [Suspect]
     Dosage: UNKNOWN

REACTIONS (2)
  - DRUG INEFFECTIVE [None]
  - HAEMARTHROSIS [None]
